FAERS Safety Report 11176964 (Version 3)
Quarter: 2015Q3

REPORT INFORMATION
  Report Type: Spontaneous
  Country: JP (occurrence: JP)
  Receive Date: 20150610
  Receipt Date: 20150714
  Transmission Date: 20151125
  Serious: Yes (Death, Hospitalization)
  Sender: FDA-Public Use
  Company Number: JP-ROCHE-1591642

PATIENT
  Age: 79 Year
  Sex: Female
  Weight: 49 kg

DRUGS (8)
  1. PARIET [Concomitant]
     Active Substance: RABEPRAZOLE SODIUM
     Route: 048
  2. ACTEMRA [Suspect]
     Active Substance: TOCILIZUMAB
     Indication: RHEUMATOID ARTHRITIS
     Route: 041
     Dates: start: 20130726, end: 20140218
  3. MYSLEE [Concomitant]
     Active Substance: ZOLPIDEM TARTRATE
     Route: 048
  4. FERROMIA [Concomitant]
     Active Substance: FERROUS CITRATE
     Route: 048
  5. INHIBACE [Concomitant]
     Active Substance: CILAZAPRIL ANHYDROUS
     Route: 048
  6. MIYA-BM [Concomitant]
     Active Substance: CLOSTRIDIUM BUTYRICUM SPORES STRAIN M-55
     Dosage: DOSAGE IS UNCERTAIN.
     Route: 048
  7. WARFARIN [Concomitant]
     Active Substance: WARFARIN
     Route: 048
  8. NORVASC [Concomitant]
     Active Substance: AMLODIPINE BESYLATE
     Route: 048

REACTIONS (6)
  - Hepatic failure [Fatal]
  - Pleural effusion [Fatal]
  - Oedema peripheral [Fatal]
  - Ascites [Fatal]
  - Cardiac failure [Fatal]
  - Arterial injury [Recovered/Resolved]

NARRATIVE: CASE EVENT DATE: 201402
